FAERS Safety Report 4950106-3 (Version None)
Quarter: 2006Q1

REPORT INFORMATION
  Report Type: 
  Country: None (occurrence: None)
  Receive Date: 20060315
  Receipt Date: 20060302
  Transmission Date: 20060701
  Serious: Yes (Hospitalization)
  Sender: FDA-Public Use
  Company Number: 2005US001809

PATIENT
  Age: 40 Year
  Sex: Female

DRUGS (1)
  1. AMBISOME [Suspect]
     Indication: CANDIDIASIS
     Dosage: 5 MG/KG, UID/QD, IV NOS
     Route: 042
     Dates: start: 20051128, end: 20051204

REACTIONS (5)
  - ABORTION SPONTANEOUS [None]
  - CANDIDIASIS [None]
  - CHORIOAMNIONITIS [None]
  - DRUG EXPOSURE DURING PREGNANCY [None]
  - PREMATURE RUPTURE OF MEMBRANES [None]
